FAERS Safety Report 12401463 (Version 1)
Quarter: 2016Q2

REPORT INFORMATION
  Report Type: Spontaneous
  Country: US (occurrence: None)
  Receive Date: 20160524
  Receipt Date: 20160524
  Transmission Date: 20160815
  Serious: Yes (Life-Threatening, Hospitalization)
  Sender: FDA-Public Use
  Company Number: None

PATIENT
  Age: 67 Year
  Sex: Male
  Weight: 77.3 kg

DRUGS (2)
  1. LORAZEPAM. [Suspect]
     Active Substance: LORAZEPAM
     Indication: PAIN
     Route: 048
     Dates: start: 20140708, end: 20160420
  2. MORPHINE [Suspect]
     Active Substance: MORPHINE
     Indication: ANXIETY
     Route: 048
     Dates: start: 20140918

REACTIONS (5)
  - Yawning [None]
  - Intentional overdose [None]
  - Suicide attempt [None]
  - Fatigue [None]
  - Dysarthria [None]

NARRATIVE: CASE EVENT DATE: 20160407
